FAERS Safety Report 25961706 (Version 1)
Quarter: 2025Q4

REPORT INFORMATION
  Report Type: Spontaneous
  Country: VC (occurrence: VC)
  Receive Date: 20251027
  Receipt Date: 20251027
  Transmission Date: 20260118
  Serious: Yes (Hospitalization, Other)
  Sender: ALKEM
  Company Number: VC-ALKEM LABORATORIES LIMITED-VC-ALKEM-2025-11347

PATIENT
  Age: 61 Year
  Sex: Male

DRUGS (15)
  1. BUPRENORPHINE AND NALOXONE [Suspect]
     Active Substance: BUPRENORPHINE HYDROCHLORIDE\NALOXONE HYDROCHLORIDE
     Indication: Pain
     Dosage: 16 MILLIGRAM, QD
     Route: 065
     Dates: start: 201808
  2. BUPRENORPHINE AND NALOXONE [Suspect]
     Active Substance: BUPRENORPHINE HYDROCHLORIDE\NALOXONE HYDROCHLORIDE
     Dosage: UNK (TAPER OFF)
     Route: 065
     Dates: start: 201901
  3. METHADONE HYDROCHLORIDE [Suspect]
     Active Substance: METHADONE HYDROCHLORIDE
     Indication: Pain
     Dosage: 45 MILLIGRAM
     Route: 065
     Dates: start: 20240428
  4. METHADONE HYDROCHLORIDE [Suspect]
     Active Substance: METHADONE HYDROCHLORIDE
     Dosage: 95 MILLIGRAM
     Route: 065
     Dates: start: 20241230
  5. METHADONE HYDROCHLORIDE [Suspect]
     Active Substance: METHADONE HYDROCHLORIDE
     Dosage: 95 MILLIGRAM, QD
     Route: 065
  6. METHADONE HYDROCHLORIDE [Suspect]
     Active Substance: METHADONE HYDROCHLORIDE
     Dosage: UNK (HIGH-DOSE)
     Route: 065
  7. OXYCODONE HYDROCHLORIDE [Suspect]
     Active Substance: OXYCODONE HYDROCHLORIDE
     Indication: Pain
     Dosage: 20 MILLIGRAM, BID (OXYCONTIN)
     Route: 065
     Dates: start: 201404
  8. OXYCODONE HYDROCHLORIDE [Suspect]
     Active Substance: OXYCODONE HYDROCHLORIDE
     Dosage: 15 MILLIGRAM, QD (100 TABLETS)
     Route: 065
  9. OXYCODONE HYDROCHLORIDE [Suspect]
     Active Substance: OXYCODONE HYDROCHLORIDE
     Dosage: 10 MILLIGRAM, QID
     Route: 065
     Dates: start: 201905
  10. OXYCODONE HYDROCHLORIDE [Suspect]
     Active Substance: OXYCODONE HYDROCHLORIDE
     Dosage: UNK (LOW DOSE)
     Route: 065
  11. OXYCODONE HYDROCHLORIDE [Suspect]
     Active Substance: OXYCODONE HYDROCHLORIDE
     Dosage: 20 MILLIGRAM, BID (OXYCONTIN)
     Route: 065
     Dates: start: 201912
  12. DULOXETINE HYDROCHLORIDE [Suspect]
     Active Substance: DULOXETINE HYDROCHLORIDE
     Indication: Pain
     Dosage: 60 MILLIGRAM, QD
     Route: 065
  13. FENTANYL [Suspect]
     Active Substance: FENTANYL
     Indication: Pain
     Dosage: 75 MICROGRAM, QD
     Route: 065
     Dates: start: 202103
  14. FENTANYL [Suspect]
     Active Substance: FENTANYL
     Dosage: UNK
     Route: 065
  15. NAMENDA [Concomitant]
     Active Substance: MEMANTINE HYDROCHLORIDE
     Indication: Pain
     Dosage: 5 MILLIGRAM, BID
     Route: 065
     Dates: start: 201903

REACTIONS (8)
  - Toxic encephalopathy [Unknown]
  - Suicidal ideation [Unknown]
  - Suicide attempt [Unknown]
  - Overdose [Unknown]
  - Hypoglycaemia [Unknown]
  - Anxiety [Unknown]
  - Adverse drug reaction [Unknown]
  - Treatment failure [Unknown]
